FAERS Safety Report 25862636 (Version 2)
Quarter: 2025Q4

REPORT INFORMATION
  Report Type: Report from Study
  Country: PK (occurrence: PK)
  Receive Date: 20250930
  Receipt Date: 20251003
  Transmission Date: 20260117
  Serious: Yes (Death, Other)
  Sender: ROCHE
  Company Number: PK-ROCHE-10000395811

PATIENT
  Age: 57 Year
  Sex: Female

DRUGS (1)
  1. MABTHERA [Suspect]
     Active Substance: RITUXIMAB
     Indication: Diffuse large B-cell lymphoma
     Route: 058
     Dates: start: 20250721

REACTIONS (8)
  - Disease progression [Fatal]
  - Pyrexia [Unknown]
  - Pain in extremity [Unknown]
  - Respiratory distress [Unknown]
  - Vomiting [Unknown]
  - Epistaxis [Unknown]
  - Leukopenia [Unknown]
  - Hypotension [Unknown]
